FAERS Safety Report 26052457 (Version 1)
Quarter: 2025Q4

REPORT INFORMATION
  Report Type: Spontaneous
  Country: US (occurrence: US)
  Receive Date: 20251117
  Receipt Date: 20251117
  Transmission Date: 20260118
  Serious: Yes (Life-Threatening, Hospitalization)
  Sender: ACCORD
  Company Number: US-MLMSERVICE-20251029-PI691108-00108-1

PATIENT
  Age: 56 Year
  Sex: Male

DRUGS (2)
  1. CLOZAPINE [Suspect]
     Active Substance: CLOZAPINE
     Indication: Product used for unknown indication
     Dosage: INGESTING AN UNKNOWN AMOUNT OF CLOZAPINE SEVERAL HOURS PRIOR TO ARRIVAL.
     Route: 048
  2. HYDROXYZINE [Concomitant]
     Active Substance: HYDROXYZINE HYDROCHLORIDE

REACTIONS (4)
  - Hypotension [Recovered/Resolved]
  - Toxicity to various agents [Unknown]
  - Distributive shock [Recovered/Resolved]
  - Intentional overdose [Unknown]
